FAERS Safety Report 8217619-2 (Version None)
Quarter: 2012Q1

REPORT INFORMATION
  Report Type: 
  Country: None (occurrence: None)
  Receive Date: 20120319
  Receipt Date: 20120319
  Transmission Date: 20120608
  Serious: Yes (Hospitalization)
  Sender: FDA-Public Use
  Company Number: None

PATIENT
  Age: 65 Year
  Sex: Female
  Weight: 48.08 kg

DRUGS (7)
  1. MEBARAL [Concomitant]
     Route: 048
  2. DILANTIN [Concomitant]
     Route: 048
  3. MYSOLINE [Concomitant]
     Route: 048
  4. MEBARAL [Suspect]
     Indication: EPILEPSY
     Dosage: 32MG
     Route: 048
  5. NITROQUIK [Concomitant]
     Route: 002
  6. VALIUM [Concomitant]
     Route: 048
  7. SYNTHROID [Concomitant]
     Route: 048

REACTIONS (3)
  - DRUG WITHDRAWAL SYNDROME [None]
  - ANGINA PECTORIS [None]
  - GRAND MAL CONVULSION [None]
